FAERS Safety Report 6423193-3 (Version None)
Quarter: 2009Q4

REPORT INFORMATION
  Report Type: 
  Country: None (occurrence: None)
  Receive Date: 20091028
  Receipt Date: 20090928
  Transmission Date: 20100525
  Serious: Yes (Other)
  Sender: FDA-Public Use
  Company Number: ADR33802009

PATIENT
  Age: 50 Year
  Sex: Female

DRUGS (6)
  1. SIMVASTATIN [Suspect]
     Dosage: ORAL
     Route: 048
  2. AZATHIOPRINE [Concomitant]
  3. BENDROFLUMETHIAZIDE [Concomitant]
  4. HYDROXYCHLOROQUINE SULFATE [Concomitant]
  5. IRBESARTAN [Concomitant]
  6. PREDNISOLONE [Concomitant]

REACTIONS (1)
  - CEREBROVASCULAR ACCIDENT [None]
